FAERS Safety Report 11386103 (Version 1)
Quarter: 2015Q3

REPORT INFORMATION
  Report Type: Report from Study
  Country: GB (occurrence: GB)
  Receive Date: 20150817
  Receipt Date: 20150817
  Transmission Date: 20151125
  Serious: Yes (Hospitalization)
  Sender: FDA-Public Use
  Company Number: GB-ROCHE-1620479

PATIENT
  Sex: Male

DRUGS (1)
  1. ESBRIET [Suspect]
     Active Substance: PIRFENIDONE
     Indication: IDIOPATHIC PULMONARY FIBROSIS
     Route: 048
     Dates: start: 20150513

REACTIONS (8)
  - Decubitus ulcer [Unknown]
  - Eye discharge [Unknown]
  - Weight decreased [Unknown]
  - Bedridden [Unknown]
  - Dyspnoea [Unknown]
  - Decreased appetite [Unknown]
  - Lacrimation increased [Unknown]
  - Conjunctivitis [Unknown]
